FAERS Safety Report 8151565-8 (Version None)
Quarter: 2012Q1

REPORT INFORMATION
  Report Type: 
  Country: None (occurrence: None)
  Receive Date: 20120220
  Receipt Date: 20120217
  Transmission Date: 20120608
  Serious: Yes (Other)
  Sender: FDA-Public Use
  Company Number: CN-ROCHE-793285

PATIENT
  Age: 53 Year
  Sex: Female
  Weight: 42 kg

DRUGS (5)
  1. XELODA [Suspect]
     Indication: GASTRIC CANCER
     Dosage: DRUG USED FOR 3 WEEKS AND FOLLOWED BY 1 WEEK OFF.
     Route: 048
     Dates: start: 20110601, end: 20111201
  2. VITAMIN B6 [Concomitant]
     Indication: PROPHYLAXIS
  3. OXALIPLATIN [Concomitant]
     Indication: GASTRIC CANCER
     Dosage: BRAND NAME WAS AIHENG
     Dates: start: 20110601, end: 20111201
  4. CHINESE TRADITIONAL MEDICINE NOS [Concomitant]
     Indication: GASTRIC CANCER
  5. XELODA [Suspect]
     Route: 048
     Dates: start: 20111201, end: 20120101

REACTIONS (10)
  - SKIN INDURATION [None]
  - HAEMORRHAGE [None]
  - FLATULENCE [None]
  - ONYCHOMADESIS [None]
  - LOCALISED INFECTION [None]
  - DECREASED APPETITE [None]
  - SKIN DISCOLOURATION [None]
  - INSOMNIA [None]
  - OEDEMA PERIPHERAL [None]
  - SKIN EXFOLIATION [None]
